FAERS Safety Report 19058921 (Version 1)
Quarter: 2021Q1

REPORT INFORMATION
  Report Type: Spontaneous
  Country: US (occurrence: US)
  Receive Date: 20210325
  Receipt Date: 20210325
  Transmission Date: 20210420
  Serious: Yes (Other)
  Sender: FDA-Public Use
  Company Number: US-SCA PHARMACEUTICALS-2021SCA00007

PATIENT
  Sex: Female

DRUGS (2)
  1. OXYTOCIN IN 0.9% SODIUM CHLORIDE [Suspect]
     Active Substance: OXYTOCIN
     Dosage: 1?2ML/HR FLOW RATE (PRE?BIRTH)
     Dates: start: 20210219, end: 20210219
  2. OXYTOCIN IN 0.9% SODIUM CHLORIDE [Suspect]
     Active Substance: OXYTOCIN
     Dosage: 250ML/HR FLOW RATE (POST?BIRTH; DISPENSED ENTIRE BAG)
     Dates: start: 20210219, end: 202102

REACTIONS (2)
  - Caesarean section [Unknown]
  - Maternal exposure during pregnancy [Recovered/Resolved]

NARRATIVE: CASE EVENT DATE: 20210219
